FAERS Safety Report 10667684 (Version 1)
Quarter: 2014Q4

REPORT INFORMATION
  Report Type: Spontaneous
  Country: US (occurrence: None)
  Receive Date: 20141208
  Receipt Date: 20141208
  Transmission Date: 20150529
  Serious: No
  Sender: FDA-Public Use
  Company Number: 2014TUS006506

PATIENT
  Age: 48 Year
  Sex: Female
  Weight: 77.1 kg

DRUGS (12)
  1. FENOFIBRATE(FENOFIBRATE) [Concomitant]
  2. LEVOTHYXOINE(LEVOTHRYOXINE) [Concomitant]
  3. LAMICTAL(LAMOTRIGINE) [Concomitant]
  4. HYDROCODONE(HYDROCODONE) [Concomitant]
  5. BRINTELLIX [Suspect]
     Active Substance: VORTIOXETINE HYDROBROMIDE
     Indication: DEPRESSION
     Route: 048
     Dates: start: 20140708, end: 20140711
  6. BRINTELLIX [Suspect]
     Active Substance: VORTIOXETINE HYDROBROMIDE
     Indication: THINKING ABNORMAL
     Route: 048
     Dates: start: 20140708, end: 20140711
  7. ATIVAN [Concomitant]
     Active Substance: LORAZEPAM
  8. BRINTELLIX [Suspect]
     Active Substance: VORTIOXETINE HYDROBROMIDE
     Indication: MOOD SWINGS
     Route: 048
     Dates: start: 20140708, end: 20140711
  9. LIPITOR(ATORVASTATIN CALCIUM) [Concomitant]
  10. ZANAFLEX(TIZANIDINE HYDROCHLORIDE) [Concomitant]
  11. RITALIN(METHYLPHENIDATE HYDROCHLORIDE) [Concomitant]
  12. TRAZODONE(TRAZODONE) [Concomitant]

REACTIONS (2)
  - Urticaria [None]
  - Paraesthesia [None]
